FAERS Safety Report 21380646 (Version 12)
Quarter: 2024Q1

REPORT INFORMATION
  Report Type: Report from Study
  Country: US (occurrence: US)
  Receive Date: 20220927
  Receipt Date: 20240117
  Transmission Date: 20240409
  Serious: No
  Sender: FDA-Public Use
  Company Number: US-NOVARTISTESTPH-NVSC2022US218171

PATIENT
  Sex: Female

DRUGS (1)
  1. PROMACTA [Suspect]
     Active Substance: ELTROMBOPAG OLAMINE
     Indication: Product used for unknown indication
     Dosage: UNK
     Route: 065

REACTIONS (16)
  - Nervousness [Unknown]
  - Dyspnoea [Unknown]
  - Ill-defined disorder [Unknown]
  - Feeling abnormal [Unknown]
  - Malaise [Unknown]
  - Platelet count decreased [Unknown]
  - Contusion [Unknown]
  - Decreased immune responsiveness [Unknown]
  - Oropharyngeal discomfort [Unknown]
  - Fatigue [Unknown]
  - Asthenia [Unknown]
  - Dizziness [Unknown]
  - Cough [Unknown]
  - Pyrexia [Unknown]
  - Rash macular [Unknown]
  - Product use issue [Unknown]
